FAERS Safety Report 4389617-0 (Version None)
Quarter: 2004Q2

REPORT INFORMATION
  Report Type: 
  Country: None (occurrence: None)
  Receive Date: 20040629
  Receipt Date: 20040107
  Transmission Date: 20050107
  Serious: Yes (Hospitalization)
  Sender: FDA-Public Use
  Company Number: US-JNJFOC-20040101245

PATIENT
  Age: 33 Year
  Sex: Female

DRUGS (8)
  1. DURAGESIC [Suspect]
     Indication: PAIN
     Dosage: SEE IMAGE
     Route: 062
     Dates: start: 20031120, end: 20031125
  2. DURAGESIC [Suspect]
     Indication: PAIN
     Dosage: SEE IMAGE
     Route: 062
     Dates: start: 20031125, end: 20031126
  3. DURAGESIC [Suspect]
     Indication: PAIN
     Dosage: SEE IMAGE
     Route: 062
     Dates: start: 20031126, end: 20031201
  4. DURAGESIC [Suspect]
     Indication: PAIN
     Dosage: SEE IMAGE
     Route: 062
     Dates: start: 20031201
  5. LORTAB [Concomitant]
  6. . [Concomitant]
  7. . [Concomitant]
  8. . [Concomitant]

REACTIONS (5)
  - AMNESIA [None]
  - ASTHENIA [None]
  - DIZZINESS [None]
  - FATIGUE [None]
  - THERAPEUTIC RESPONSE DECREASED [None]
